FAERS Safety Report 8409000 (Version 3)
Quarter: 2024Q2

REPORT INFORMATION
  Report Type: Report from Study
  Country: JP (occurrence: JP)
  Receive Date: 20120216
  Receipt Date: 20240625
  Transmission Date: 20240716
  Serious: Yes (Hospitalization)
  Sender: FDA-Public Use
  Company Number: JP-CHUGAI-A2011015593ROCHE

PATIENT
  Age: 64 Year
  Sex: Female

DRUGS (21)
  1. ACTEMRA [Suspect]
     Active Substance: TOCILIZUMAB
     Indication: Rheumatoid arthritis
     Route: 042
     Dates: start: 20080528, end: 20090520
  2. ACTEMRA [Suspect]
     Active Substance: TOCILIZUMAB
     Dosage: 336MG-352MG
     Route: 042
     Dates: start: 20090622, end: 20090824
  3. ACTEMRA [Suspect]
     Active Substance: TOCILIZUMAB
     Dosage: 344MG-360MG
     Route: 042
     Dates: start: 20091009, end: 20100710
  4. ISCOTIN [Concomitant]
     Active Substance: ISONIAZID
     Indication: Antibiotic prophylaxis
     Dosage: 0.3G,1 TIMES IN 1DAY
     Route: 050
     Dates: start: 20080528, end: 20081125
  5. ISCOTIN [Concomitant]
     Active Substance: ISONIAZID
     Indication: Antibiotic prophylaxis
  6. PROGRAF [Concomitant]
     Active Substance: TACROLIMUS
     Indication: Rheumatoid arthritis
     Dosage: 3MG,1 TIMES IN 1DAY
     Route: 050
     Dates: end: 20080821
  7. VOLTAREN [Concomitant]
     Active Substance: DICLOFENAC SODIUM
     Indication: Rheumatoid arthritis
     Dosage: 75MG,1 TIMES IN 1DAY
     Route: 050
     Dates: end: 20080821
  8. CYTOTEC [Concomitant]
     Active Substance: MISOPROSTOL
     Indication: Gastric ulcer
     Dosage: 200 MCG, 1 TIMES IN 1DAY
     Route: 050
     Dates: end: 20091110
  9. VOLTAREN [Concomitant]
     Active Substance: DICLOFENAC SODIUM
     Indication: Rheumatoid arthritis
     Route: 048
     Dates: end: 20080821
  10. GASTER [Concomitant]
     Active Substance: FAMOTIDINE
     Indication: Gastritis
     Dosage: 20MG,1 TIMES IN 1DAY
     Route: 050
  11. GASTER [Concomitant]
     Active Substance: FAMOTIDINE
     Route: 048
  12. REBAMIPIDE [Concomitant]
     Active Substance: REBAMIPIDE
     Indication: Gastritis
     Dosage: 200MG,1 TIMES IN 1DAY
     Route: 050
  13. REBAMIPIDE [Concomitant]
     Active Substance: REBAMIPIDE
     Route: 048
  14. BONALON [Concomitant]
     Active Substance: ALENDRONATE SODIUM
     Indication: Osteoporosis
     Dosage: 5MG,1 TIMES IN 1DAY
     Route: 050
  15. BONALON [Concomitant]
     Active Substance: ALENDRONATE SODIUM
     Route: 048
  16. ONEALFA [Concomitant]
     Active Substance: ALFACALCIDOL
     Indication: Osteoporosis
     Dosage: 0.5 MCG,1 TIMES IN 1DAY
     Route: 050
  17. ONEALFA [Concomitant]
     Active Substance: ALFACALCIDOL
     Route: 048
  18. SODIUM FERROUS CITRATE [Concomitant]
     Active Substance: SODIUM FERROUS CITRATE
     Indication: Iron deficiency anaemia
     Dosage: 50MG,1 TIMES IN 1DAY
     Route: 050
     Dates: end: 20091110
  19. MAGNESIUM OXIDE [Concomitant]
     Active Substance: MAGNESIUM OXIDE
     Indication: Constipation
     Dosage: 1G,1 TIMES IN 1DAY
     Route: 050
     Dates: start: 20080723, end: 20080916
  20. ETODOLAC [Concomitant]
     Active Substance: ETODOLAC
     Indication: Rheumatoid arthritis
     Dosage: 400MG,1 TIMES IN 1DAY
     Route: 050
     Dates: start: 20080822, end: 20091110
  21. HYPEN [Concomitant]
     Indication: Rheumatoid arthritis
     Route: 048
     Dates: start: 20080822, end: 20091110

REACTIONS (3)
  - Autoimmune hepatitis [Recovered/Resolved]
  - Diarrhoea [Recovered/Resolved]
  - Malaise [Recovered/Resolved]

NARRATIVE: CASE EVENT DATE: 20090924
